FAERS Safety Report 10524594 (Version 1)
Quarter: 2014Q4

REPORT INFORMATION
  Report Type: Spontaneous
  Country: US (occurrence: None)
  Receive Date: 20141015
  Receipt Date: 20141015
  Transmission Date: 20150528
  Serious: Yes (Hospitalization)
  Sender: FDA-Public Use
  Company Number: None

PATIENT
  Age: 61 Year
  Sex: Female
  Weight: 168 kg

DRUGS (1)
  1. PROLIA [Suspect]
     Active Substance: DENOSUMAB
     Indication: OSTEOPOROSIS
     Dosage: ONE INJECT Q 6 MONTH SUBQ
     Route: 058

REACTIONS (4)
  - Swelling [None]
  - Pain [None]
  - Erythema [None]
  - Tenderness [None]

NARRATIVE: CASE EVENT DATE: 20141007
